FAERS Safety Report 11063048 (Version 1)
Quarter: 2015Q2

REPORT INFORMATION
  Report Type: Spontaneous
  Country: US (occurrence: US)
  Receive Date: 20150424
  Receipt Date: 20150424
  Transmission Date: 20150821
  Serious: Yes (Other)
  Sender: FDA-Public Use
  Company Number: US-JNJFOC-20150413319

PATIENT
  Age: 40 Year
  Sex: Female

DRUGS (2)
  1. TOPIRAMATE. [Suspect]
     Active Substance: TOPIRAMATE
     Indication: DRUG THERAPY
     Route: 048
  2. TOPIRAMATE. [Suspect]
     Active Substance: TOPIRAMATE
     Indication: ALCOHOLISM
     Route: 048

REACTIONS (3)
  - Product use issue [Unknown]
  - Angle closure glaucoma [Recovered/Resolved]
  - Choroidal effusion [Recovered/Resolved]
